FAERS Safety Report 17895814 (Version 1)
Quarter: 2020Q2

REPORT INFORMATION
  Report Type: Spontaneous
  Country: US (occurrence: US)
  Receive Date: 20200615
  Receipt Date: 20200615
  Transmission Date: 20200714
  Serious: Yes (Disabling, Other)
  Sender: FDA-Public Use
  Company Number: US-SA-2020SA149202

PATIENT

DRUGS (1)
  1. ZANTAC 75 [Suspect]
     Active Substance: RANITIDINE HYDROCHLORIDE
     Indication: GASTROOESOPHAGEAL REFLUX DISEASE
     Dosage: UNK UNK, QW
     Route: 065
     Dates: start: 1980

REACTIONS (5)
  - Injury [Unknown]
  - Prostate cancer [Unknown]
  - Emotional distress [Unknown]
  - Impaired work ability [Unknown]
  - Pain [Unknown]

NARRATIVE: CASE EVENT DATE: 202001
